FAERS Safety Report 8803879 (Version 2)
Quarter: 2012Q4

REPORT INFORMATION
  Report Type: 
  Country: US (occurrence: US)
  Receive Date: 20120924
  Receipt Date: 20121004
  Transmission Date: 20130627
  Serious: Yes (Life-Threatening)
  Sender: FDA-Public Use
  Company Number: US-PURDUE-USA-2012-0093384

PATIENT
  Age: 57 Year
  Sex: Female

DRUGS (3)
  1. OXYCONTIN (NDA 22-272) [Suspect]
     Indication: PRODUCT USED FOR UNKNOWN INDICATION
     Dosage: 180 mg, UNK
     Route: 048
  2. OXYCONTIN (NDA 22-272) [Suspect]
     Dosage: 120 mg, see text
     Route: 048
  3. OXYCONTIN (NDA 22-272) [Suspect]
     Dosage: 120 mg, PM
     Route: 048

REACTIONS (2)
  - Device occlusion [Unknown]
  - Medication residue [Unknown]
